FAERS Safety Report 11754234 (Version 2)
Quarter: 2016Q3

REPORT INFORMATION
  Report Type: Spontaneous
  Country: US (occurrence: US)
  Receive Date: 20151119
  Receipt Date: 20160729
  Transmission Date: 20161109
  Serious: Yes (Other)
  Sender: FDA-Public Use
  Company Number: US-MYLANLABS-2015M1016943

PATIENT

DRUGS (6)
  1. NADOLOL. [Suspect]
     Active Substance: NADOLOL
     Indication: MIGRAINE
     Dosage: 20 MG, TID
     Dates: start: 2009
  2. NADOLOL. [Suspect]
     Active Substance: NADOLOL
     Indication: MIGRAINE
     Dosage: 10 MG, QD
     Dates: end: 2009
  3. NADOLOL. [Suspect]
     Active Substance: NADOLOL
     Indication: BLOOD PRESSURE MEASUREMENT
  4. NADOLOL. [Suspect]
     Active Substance: NADOLOL
     Indication: BLOOD PRESSURE MEASUREMENT
  5. NADOLOL. [Suspect]
     Active Substance: NADOLOL
     Indication: OFF LABEL USE
  6. NADOLOL. [Suspect]
     Active Substance: NADOLOL
     Indication: OFF LABEL USE

REACTIONS (3)
  - Somnolence [Recovered/Resolved]
  - Bradycardia [Recovered/Resolved]
  - Drug ineffective for unapproved indication [Recovered/Resolved]
